FAERS Safety Report 7301203-9 (Version None)
Quarter: 2010Q4

REPORT INFORMATION
  Report Type: 
  Country: None (occurrence: None)
  Receive Date: 20101229
  Receipt Date: 20100916
  Transmission Date: 20110411
  Serious: No
  Sender: FDA-Public Use
  Company Number: 1000016275

PATIENT
  Age: 48 Year
  Sex: Female

DRUGS (3)
  1. BYSTOLIC [Suspect]
     Indication: HYPERTENSION
     Dosage: 2.5 MG (2.5 MG, 1 IN 1 D), ORAL
     Route: 048
     Dates: start: 20100911
  2. RAMIPRIL [Concomitant]
  3. MULTIVITAMIN (MULTIVITAMINS) (MULTIVITAMINS) [Concomitant]

REACTIONS (1)
  - ALOPECIA [None]
